APPROVED DRUG PRODUCT: AMOXICILLIN AND CLAVULANATE POTASSIUM
Active Ingredient: AMOXICILLIN; CLAVULANATE POTASSIUM
Strength: 200MG/5ML;EQ 28.5MG BASE/5ML
Dosage Form/Route: FOR SUSPENSION;ORAL
Application: A205187 | Product #001 | TE Code: AB
Applicant: MICRO LABS LTD INDIA
Approved: May 21, 2021 | RLD: No | RS: No | Type: RX